FAERS Safety Report 8121392-6 (Version None)
Quarter: 2012Q1

REPORT INFORMATION
  Report Type: 
  Country: None (occurrence: None)
  Receive Date: 20120208
  Receipt Date: 20120201
  Transmission Date: 20120608
  Serious: No
  Sender: FDA-Public Use
  Company Number: US-PFIZER INC-2012028826

PATIENT
  Sex: Female

DRUGS (1)
  1. AZULFIDINE [Suspect]
     Dosage: UNK

REACTIONS (3)
  - INCREASED UPPER AIRWAY SECRETION [None]
  - POLLAKIURIA [None]
  - DRY MOUTH [None]
